FAERS Safety Report 14914856 (Version 1)
Quarter: 2018Q2

REPORT INFORMATION
  Report Type: Spontaneous
  Country: US (occurrence: US)
  Receive Date: 20180518
  Receipt Date: 20180518
  Transmission Date: 20180711
  Serious: No
  Sender: FDA-Public Use
  Company Number: US-BAYER-2018-089578

PATIENT
  Age: 32 Year
  Sex: Female
  Weight: 88.98 kg

DRUGS (3)
  1. CLARITIN [Suspect]
     Active Substance: LORATADINE
     Indication: NASOPHARYNGITIS
  2. METHYLDOPA. [Concomitant]
     Active Substance: METHYLDOPA
     Dosage: UNK
  3. CLARITIN [Suspect]
     Active Substance: LORATADINE
     Indication: HYPERSENSITIVITY
     Dosage: 1 TABLET DAILY
     Route: 048

REACTIONS (2)
  - Incorrect dosage administered [Unknown]
  - Product quality issue [Unknown]
